FAERS Safety Report 8534221 (Version 3)
Quarter: 2017Q1

REPORT INFORMATION
  Report Type: Spontaneous
  Country: US (occurrence: US)
  Receive Date: 20120427
  Receipt Date: 20170113
  Transmission Date: 20170429
  Serious: Yes (Other)
  Sender: FDA-Public Use
  Company Number: US-ALEXION PHARMACEUTICALS INC.-A201200731

PATIENT
  Age: 12 Year
  Sex: Female
  Weight: 50 kg

DRUGS (17)
  1. CEFDINIR. [Concomitant]
     Active Substance: CEFDINIR
     Indication: PROPHYLAXIS
     Dosage: 300 MG, QHS
     Route: 048
     Dates: start: 20120411
  2. VINCRISTINE [Concomitant]
     Active Substance: VINCRISTINE
     Indication: B-CELL LYMPHOMA
     Dosage: UNK
  3. MVI [Concomitant]
     Active Substance: VITAMINS
     Indication: SUPPLEMENTATION THERAPY
     Dosage: 1 TAB, QD
     Route: 048
     Dates: start: 20120415
  4. SOLIRIS [Suspect]
     Active Substance: ECULIZUMAB
     Indication: HAEMOLYTIC URAEMIC SYNDROME
     Dosage: 900 MG, WITH SUPPLEMENTAL 600 MG QOD
     Route: 042
     Dates: start: 20120411, end: 20120430
  5. BACTRIM [Concomitant]
     Active Substance: SULFAMETHOXAZOLE\TRIMETHOPRIM
     Indication: PROPHYLAXIS
     Dosage: 1 TAB, TID
     Route: 048
     Dates: start: 20120415
  6. AMLODIPINE [Concomitant]
     Active Substance: AMLODIPINE BESYLATE
     Indication: HYPERTENSION
     Dosage: 7.5 MG, QD
     Route: 048
     Dates: start: 20120413
  7. FOLIC ACID. [Concomitant]
     Active Substance: FOLIC ACID
     Indication: SUPPLEMENTATION THERAPY
     Dosage: 1 MG, QD
     Route: 048
     Dates: start: 20120403
  8. PREDNISOLONE. [Concomitant]
     Active Substance: PREDNISOLONE
     Dosage: 60 MG, QD
     Route: 048
     Dates: start: 20120414
  9. PANTOPRAZOLE [Concomitant]
     Active Substance: PANTOPRAZOLE SODIUM
     Indication: DYSPEPSIA
     Dosage: 40 MG, QD
     Route: 048
     Dates: start: 20120403
  10. MTX [Concomitant]
     Active Substance: METHOTREXATE SODIUM
     Indication: B-CELL LYMPHOMA
     Dosage: UNK
  11. ZANTAC [Concomitant]
     Active Substance: RANITIDINE HYDROCHLORIDE
     Dosage: UNK
  12. TYLENOL [Concomitant]
     Active Substance: ACETAMINOPHEN
     Dosage: UNK
  13. CALCIUM CARBONATE. [Concomitant]
     Active Substance: CALCIUM CARBONATE
     Indication: MINERAL SUPPLEMENTATION
     Dosage: 1000 MG, TID
     Route: 048
     Dates: start: 20120415
  14. MERCAPTOPURINE. [Concomitant]
     Active Substance: MERCAPTOPURINE
     Indication: B-CELL LYMPHOMA
     Dosage: UNK
  15. PREDNISONE. [Concomitant]
     Active Substance: PREDNISONE
     Indication: B-CELL LYMPHOMA
     Dosage: UNK
  16. ZYRTEC [Concomitant]
     Active Substance: CETIRIZINE HYDROCHLORIDE
     Indication: HYPERSENSITIVITY
     Dosage: UNK
  17. ZOFRAN [Concomitant]
     Active Substance: ONDANSETRON HYDROCHLORIDE
     Dosage: UNK

REACTIONS (8)
  - Renal failure [Unknown]
  - Nervous system disorder [Unknown]
  - Cardiomyopathy [Not Recovered/Not Resolved]
  - Seizure [Recovered/Resolved]
  - Cardiac failure congestive [Unknown]
  - Pyrexia [Recovered/Resolved]
  - General physical health deterioration [Recovering/Resolving]
  - Platelet count decreased [Unknown]

NARRATIVE: CASE EVENT DATE: 20120416
